FAERS Safety Report 16808775 (Version 2)
Quarter: 2024Q3

REPORT INFORMATION
  Report Type: Spontaneous
  Country: IT (occurrence: IT)
  Receive Date: 20190916
  Receipt Date: 20240829
  Transmission Date: 20241016
  Serious: Yes (Life-Threatening, Hospitalization, Other)
  Sender: ACCORD
  Company Number: IT-MLMSERVICE-20190905-1898586-1

PATIENT
  Age: 72 Year
  Sex: Male

DRUGS (2)
  1. MYCOPHENOLIC ACID [Suspect]
     Active Substance: MYCOPHENOLIC ACID
     Indication: Immunosuppressant drug therapy
  2. TACROLIMUS [Suspect]
     Active Substance: TACROLIMUS
     Indication: Immunosuppressant drug therapy

REACTIONS (6)
  - Pneumonia [Recovering/Resolving]
  - Acute kidney injury [Unknown]
  - Urosepsis [Recovering/Resolving]
  - Staphylococcal infection [Recovering/Resolving]
  - Septic shock [Recovering/Resolving]
  - Respiratory distress [Unknown]
